FAERS Safety Report 4623911-0 (Version None)
Quarter: 2005Q1

REPORT INFORMATION
  Report Type: 
  Country: None (occurrence: None)
  Receive Date: 20050331
  Receipt Date: 20050316
  Transmission Date: 20050727
  Serious: Yes (Hospitalization)
  Sender: FDA-Public Use
  Company Number: US-JNJFOC-20050305429

PATIENT
  Sex: Female

DRUGS (3)
  1. TYLENOL (CAPLET) [Suspect]
  2. TYLENOL (CAPLET) [Suspect]
     Dosage: {3000 MG PER DAY
  3. TYLENOL (CAPLET) [Suspect]

REACTIONS (4)
  - BUDD-CHIARI SYNDROME [None]
  - CRYPTOGENIC CIRRHOSIS [None]
  - PORTAL HYPERTENSION [None]
  - SPLENOMEGALY [None]
